FAERS Safety Report 17271809 (Version 1)
Quarter: 2020Q1

REPORT INFORMATION
  Report Type: Spontaneous
  Country: US (occurrence: US)
  Receive Date: 20200115
  Receipt Date: 20200115
  Transmission Date: 20200409
  Serious: Yes (Other)
  Sender: FDA-Public Use
  Company Number: US-HORIZON-ACT-0002-2020

PATIENT
  Age: 27 Year
  Sex: Male

DRUGS (1)
  1. ACTIMMUNE [Suspect]
     Active Substance: INTERFERON GAMMA-1B
     Indication: PRODUCT USED FOR UNKNOWN INDICATION
     Dosage: 100MCG
     Dates: start: 20180201

REACTIONS (3)
  - Therapy cessation [Unknown]
  - Product prescribing issue [Unknown]
  - Staphylococcal skin infection [Unknown]

NARRATIVE: CASE EVENT DATE: 201912
